FAERS Safety Report 18731517 (Version 3)
Quarter: 2022Q1

REPORT INFORMATION
  Report Type: Spontaneous
  Country: US (occurrence: US)
  Receive Date: 20210112
  Receipt Date: 20220210
  Transmission Date: 20220423
  Serious: Yes (Other)
  Sender: FDA-Public Use
  Company Number: US-BAYER-2021-020667

PATIENT
  Age: 21 Year
  Sex: Female
  Weight: 55 kg

DRUGS (1)
  1. KYLEENA [Suspect]
     Active Substance: LEVONORGESTREL
     Indication: Contraception
     Dosage: 17.5?G/DAY
     Route: 015
     Dates: start: 20200901, end: 20201229

REACTIONS (2)
  - Ectopic pregnancy with contraceptive device [Not Recovered/Not Resolved]
  - Drug ineffective [None]

NARRATIVE: CASE EVENT DATE: 20201229
